FAERS Safety Report 4506910-9 (Version None)
Quarter: 2004Q4

REPORT INFORMATION
  Report Type: 
  Country: None (occurrence: None)
  Receive Date: 20041122
  Receipt Date: 20041014
  Transmission Date: 20050328
  Serious: Yes (Other)
  Sender: FDA-Public Use
  Company Number: US-AMGEN-US095424

PATIENT
  Sex: Female

DRUGS (2)
  1. ENBREL [Suspect]
     Indication: ANKYLOSING SPONDYLITIS
     Dates: start: 20040401, end: 20041016
  2. AZULFIDINE [Concomitant]
     Dates: start: 19980101

REACTIONS (2)
  - CONDITION AGGRAVATED [None]
  - UVEITIS [None]
